FAERS Safety Report 9468274 (Version 1)
Quarter: 2013Q3

REPORT INFORMATION
  Report Type: Spontaneous
  Country: CN (occurrence: CN)
  Receive Date: 20130821
  Receipt Date: 20130821
  Transmission Date: 20140515
  Serious: Yes (Other)
  Sender: FDA-Public Use
  Company Number: CN-PFIZER INC-2013240363

PATIENT
  Age: 69 Year
  Sex: Male
  Weight: 79 kg

DRUGS (6)
  1. LIPITOR [Suspect]
     Indication: DYSLIPIDAEMIA
     Dosage: 20 MG, 1X/DAY
     Route: 048
     Dates: start: 20120104, end: 20120106
  2. METFORMIN [Concomitant]
     Dosage: 500 MG, 3X/DAY
     Route: 048
  3. CLOPIDOGREL SULFATE [Concomitant]
     Dosage: 75 MG, 1X/DAY
     Route: 048
     Dates: start: 20120104
  4. BUTYLPHTHALIDE [Concomitant]
     Dosage: 0.28 UNK, 3X/DAY
     Route: 048
     Dates: start: 20120104
  5. VINPOCETINE [Concomitant]
     Dosage: 30 MG, 1X/DAY
     Route: 041
     Dates: start: 20120104
  6. SHU XUE NING [Concomitant]
     Dosage: 20 ML, 1X/DAY

REACTIONS (3)
  - Rhabdomyolysis [Recovered/Resolved]
  - Blood creatine phosphokinase increased [Recovered/Resolved]
  - Blood creatine phosphokinase MB increased [Recovered/Resolved]
